FAERS Safety Report 8287341-5 (Version None)
Quarter: 2012Q2

REPORT INFORMATION
  Report Type: 
  Country: None (occurrence: None)
  Receive Date: 20120416
  Receipt Date: 20120411
  Transmission Date: 20120825
  Serious: Yes (Other)
  Sender: FDA-Public Use
  Company Number: US-ROCHE-751887

PATIENT
  Sex: Male
  Weight: 70.3 kg

DRUGS (1)
  1. ACCUTANE [Suspect]
     Indication: ACNE CYSTIC
     Route: 065
     Dates: start: 19990901, end: 19991001

REACTIONS (8)
  - ENTEROCUTANEOUS FISTULA [None]
  - DEPRESSION [None]
  - INFLAMMATORY BOWEL DISEASE [None]
  - COLITIS ULCERATIVE [None]
  - ANAL FISTULA [None]
  - CROHN'S DISEASE [None]
  - ABSCESS INTESTINAL [None]
  - SUPRAVENTRICULAR TACHYCARDIA [None]
